FAERS Safety Report 14759959 (Version 1)
Quarter: 2018Q2

REPORT INFORMATION
  Report Type: Report from Study
  Country: FR (occurrence: FR)
  Receive Date: 20180413
  Receipt Date: 20180413
  Transmission Date: 20180711
  Serious: Yes (Death)
  Sender: FDA-Public Use
  Company Number: FR-PFIZER INC-2018148806

PATIENT

DRUGS (7)
  1. MELPHALAN. [Suspect]
     Active Substance: MELPHALAN
     Indication: NON-HODGKIN^S LYMPHOMA
     Dosage: 140 MG/M2, (DAY -1)
  2. NEORECORMON [Suspect]
     Active Substance: ERYTHROPOIETIN
     Indication: NON-HODGKIN^S LYMPHOMA
     Dosage: 150 IU/KG, DAILY ON A 24 H CONTINUOUS INFUSION
     Route: 042
  3. CYTARABINE. [Suspect]
     Active Substance: CYTARABINE
     Indication: NON-HODGKIN^S LYMPHOMA
     Dosage: 200 MG/M2, DAILY (FROM DAYS -5 TO -2)
  4. ETOPOSIDE. [Suspect]
     Active Substance: ETOPOSIDE
     Indication: NON-HODGKIN^S LYMPHOMA
     Dosage: 200 MG/M2, DAILY (FROM DAYS -5 TO -2)
  5. BICNU [Suspect]
     Active Substance: CARMUSTINE
     Indication: NON-HODGKIN^S LYMPHOMA
     Dosage: 300 MG/M2, (ON DAY -6)
  6. NEUPOGEN [Suspect]
     Active Substance: FILGRASTIM
     Indication: NON-HODGKIN^S LYMPHOMA
     Dosage: 5 UG/KG, DAILY (OVER 30 MIN)
     Route: 042
  7. LEUCOMAX [Suspect]
     Active Substance: MOLGRAMOSTIM
     Indication: NON-HODGKIN^S LYMPHOMA
     Dosage: 5 UG/KG, DAILY (OVER 6-8 H)
     Route: 042

REACTIONS (1)
  - Death [Fatal]
